FAERS Safety Report 16665082 (Version 2)
Quarter: 2022Q1

REPORT INFORMATION
  Report Type: Spontaneous
  Country: FR (occurrence: FR)
  Receive Date: 20190803
  Receipt Date: 20220204
  Transmission Date: 20220423
  Serious: Yes (Other)
  Sender: FDA-Public Use
  Company Number: FR-SUN PHARMACEUTICAL INDUSTRIES LTD-2019RR-216313

PATIENT
  Age: 10 Year
  Sex: Female

DRUGS (1)
  1. CETIRIZINE [Suspect]
     Active Substance: CETIRIZINE HYDROCHLORIDE
     Indication: Accidental exposure to product by child
     Dosage: 0.49 MILLIGRAM/KILOGRAM (ACCIDENTALLY TAKING TWO 10 MG TABLETS)
     Route: 048

REACTIONS (4)
  - Confusional state [Unknown]
  - Incoherent [Unknown]
  - Headache [Unknown]
  - Incorrect dose administered [Unknown]
